FAERS Safety Report 23717566 (Version 5)
Quarter: 2024Q3

REPORT INFORMATION
  Report Type: Report from Study
  Country: US (occurrence: US)
  Receive Date: 20240408
  Receipt Date: 20240921
  Transmission Date: 20241017
  Serious: No
  Sender: ABBVIE
  Company Number: US-ABBVIE-5545809

PATIENT
  Age: 50 Year
  Sex: Male
  Weight: 138 kg

DRUGS (16)
  1. RINVOQ [Suspect]
     Active Substance: UPADACITINIB
     Indication: Crohn^s disease
     Dosage: FORM STRENGTH: 45 MILLIGRAM?LAST ADMIN DATE 2023
     Route: 048
     Dates: start: 202310, end: 202401
  2. RINVOQ [Suspect]
     Active Substance: UPADACITINIB
     Indication: Crohn^s disease
     Dosage: FORM STRENGTH: 30 MILLIGRAM
     Route: 048
     Dates: start: 202401, end: 202404
  3. RINVOQ [Suspect]
     Active Substance: UPADACITINIB
     Indication: Crohn^s disease
     Dosage: START DATE MID OF JAN 2024
     Route: 048
     Dates: start: 202405
  4. METOPROLOL [Concomitant]
     Active Substance: METOPROLOL
     Indication: Heart rate increased
     Dosage: FORM STRENGTH: 100 MILLIGRAM
  5. ATORVASTATIN [Concomitant]
     Active Substance: ATORVASTATIN
     Indication: Blood cholesterol increased
  6. OLMESARTAN [Concomitant]
     Active Substance: OLMESARTAN
     Indication: Hypertension
  7. FIBERLAX [Concomitant]
     Indication: Bowel movement irregularity
     Dosage: TIME INTERVAL: AS NECESSARY: FORM STRENGTH: 500 MILLIGRAM
  8. SELENIUM [Concomitant]
     Active Substance: SELENIUM
     Indication: Supplementation therapy
     Dosage: FORM STRENGTH: 200 MILLIGRAM
  9. ALLEGRA [Concomitant]
     Active Substance: FEXOFENADINE HYDROCHLORIDE
     Indication: Hypersensitivity
  10. VITAMINS [Concomitant]
     Active Substance: VITAMINS
     Indication: Vitamin supplementation
  11. FISH OIL [Concomitant]
     Active Substance: FISH OIL
     Indication: Cardiac disorder
  12. VITAMIN D3 [Concomitant]
     Active Substance: CHOLECALCIFEROL
     Indication: Vitamin supplementation
  13. METFORMIN [Concomitant]
     Active Substance: METFORMIN HYDROCHLORIDE
     Indication: Glucose tolerance impaired
     Dosage: FORM STRENGTH: 1000 MILLIGRAM
  14. OMEPRAZOLE [Concomitant]
     Active Substance: OMEPRAZOLE
     Indication: Barrett^s oesophagus
  15. DESONIDE [Concomitant]
     Active Substance: DESONIDE
     Indication: Erythema
  16. CORTIZONE 10 [Concomitant]
     Active Substance: HYDROCORTISONE
     Indication: Plantar fasciitis
     Dates: start: 20240507

REACTIONS (18)
  - Erythema [Recovering/Resolving]
  - Faecal calprotectin increased [Not Recovered/Not Resolved]
  - Abdominal pain upper [Not Recovered/Not Resolved]
  - Rash [Not Recovered/Not Resolved]
  - Discomfort [Recovering/Resolving]
  - Rash papular [Recovering/Resolving]
  - Drug intolerance [Recovered/Resolved]
  - Crohn^s disease [Recovering/Resolving]
  - Rash pruritic [Not Recovered/Not Resolved]
  - Exostosis [Recovering/Resolving]
  - Exfoliative rash [Not Recovered/Not Resolved]
  - Flushing [Recovered/Resolved]
  - Pruritus [Recovering/Resolving]
  - Dry skin [Recovering/Resolving]
  - Skin discomfort [Not Recovered/Not Resolved]
  - Plantar fasciitis [Recovering/Resolving]
  - Arthritis [Unknown]
  - Abdominal discomfort [Not Recovered/Not Resolved]

NARRATIVE: CASE EVENT DATE: 20231001
